FAERS Safety Report 6517031-8 (Version None)
Quarter: 2009Q4

REPORT INFORMATION
  Report Type: 
  Country: None (occurrence: None)
  Receive Date: 20091223
  Receipt Date: 20091210
  Transmission Date: 20100525
  Serious: Yes (Other)
  Sender: FDA-Public Use
  Company Number: US-PFIZER INC-2009311742

PATIENT
  Sex: Male
  Weight: 136.5 kg

DRUGS (3)
  1. GEODON [Suspect]
     Indication: MAJOR DEPRESSION
     Dosage: UNK
     Dates: start: 20080901
  2. PROZAC [Concomitant]
  3. FOCALIN [Concomitant]
     Indication: ATTENTION DEFICIT/HYPERACTIVITY DISORDER

REACTIONS (2)
  - PSYCHOTIC DISORDER [None]
  - WITHDRAWAL SYNDROME [None]
